FAERS Safety Report 5585794-4 (Version None)
Quarter: 2008Q1

REPORT INFORMATION
  Report Type: 
  Country: None (occurrence: None)
  Receive Date: 20080109
  Receipt Date: 20071231
  Transmission Date: 20080703
  Serious: Yes (Other)
  Sender: FDA-Public Use
  Company Number: US-ABBOTT-07P-163-0362382-00

PATIENT
  Sex: Male
  Weight: 65.83 kg

DRUGS (7)
  1. HUMIRA [Suspect]
     Indication: RHEUMATOID ARTHRITIS
     Route: 058
     Dates: start: 20031101, end: 20041201
  2. ETANERCEPT [Suspect]
     Indication: RHEUMATOID ARTHRITIS
     Route: 058
     Dates: start: 20030101, end: 20031101
  3. INFLIXIMAB [Suspect]
     Indication: DRUG USE FOR UNKNOWN INDICATION
     Dosage: LYPHOLIZED POWDER
     Route: 042
     Dates: start: 20010101
  4. INFLIXIMAB [Suspect]
     Dates: start: 20020701, end: 20021201
  5. INFLIXIMAB [Suspect]
     Dates: end: 20030101
  6. PREDNISONE TAB [Concomitant]
     Indication: RHEUMATOID ARTHRITIS
  7. NAPROXEN SODIUM [Concomitant]
     Indication: RHEUMATOID ARTHRITIS

REACTIONS (8)
  - ABDOMINAL NEOPLASM [None]
  - NECK MASS [None]
  - NON-HODGKIN'S LYMPHOMA [None]
  - ONYCHOMADESIS [None]
  - PARAPROTEINAEMIA [None]
  - PROTEIN TOTAL INCREASED [None]
  - SKIN INFECTION [None]
  - WEIGHT DECREASED [None]
